FAERS Safety Report 10227976 (Version 1)
Quarter: 2014Q2

REPORT INFORMATION
  Report Type: Spontaneous
  Country: GB (occurrence: GB)
  Receive Date: 20140610
  Receipt Date: 20140610
  Transmission Date: 20141212
  Serious: Yes (Hospitalization)
  Sender: FDA-Public Use
  Company Number: PHFR2014GB004056

PATIENT
  Age: 69 Year
  Sex: Male

DRUGS (7)
  1. CLOZARIL [Suspect]
     Indication: SCHIZOPHRENIA
     Dosage: UNK UKN, UNK
     Dates: start: 20030429
  2. CLOPIDOGREL [Concomitant]
     Dosage: 75 MG, ONCE DAILY
     Route: 048
  3. BUMETANIDE [Concomitant]
     Dosage: 5 MG, ONCE DAILY
     Route: 048
  4. TOLTERODINE [Concomitant]
     Dosage: 4 MG, ONCE DAILY
     Route: 048
  5. FERROUS SULFATE [Concomitant]
     Dosage: 200 MG, ONCE DAILY
  6. DOMPERIDONE [Concomitant]
     Dosage: 10 MG, BID
     Route: 048
  7. ATORVASTATIN [Concomitant]
     Dosage: 40 MG, ONCE DAILY
     Route: 048

REACTIONS (6)
  - Acute left ventricular failure [Recovered/Resolved]
  - Dyspnoea [Recovering/Resolving]
  - Malaise [Recovering/Resolving]
  - Red blood cell count decreased [Recovering/Resolving]
  - Haematocrit decreased [Recovering/Resolving]
  - Haemoglobin decreased [Recovering/Resolving]
